FAERS Safety Report 6259708-8 (Version None)
Quarter: 2009Q3

REPORT INFORMATION
  Report Type: 
  Country: None (occurrence: None)
  Receive Date: 20090708
  Receipt Date: 20090626
  Transmission Date: 20100115
  Serious: Yes (Hospitalization)
  Sender: FDA-Public Use
  Company Number: US-SOLVAY-00209003444

PATIENT
  Age: 51 Year
  Sex: Male
  Weight: 106.36 kg

DRUGS (11)
  1. FENTANYL [Concomitant]
     Indication: BACK PAIN
     Dosage: DAILY DOSE:  UNKNOWN
     Route: 062
  2. ANDROGEL [Suspect]
     Indication: BLOOD TESTOSTERONE DECREASED
     Dosage: DAILY DOSE: 7.5 GRAM(S)
     Route: 062
     Dates: start: 20040101, end: 20060101
  3. ANDROGEL [Suspect]
     Dosage: DAILY DOSE: 6.25 GRAM(S)
     Route: 062
     Dates: start: 20060101, end: 20080101
  4. ANDROGEL [Suspect]
     Dosage: DAILY DOSE: 5 GRAM(S)
     Route: 062
     Dates: start: 20080901
  5. PERCOCET [Concomitant]
     Indication: BACK PAIN
     Dosage: DAILY DOSE:  UNKNOWN, FREQUENCY: AS NEEDED.
     Route: 048
  6. DILAUDID [Concomitant]
     Indication: BACK PAIN
     Dosage: DAILY DOSE:  UNKNOWN, FREQUENCY: AS NEEDED.
     Route: 048
  7. VALIUM [Concomitant]
     Indication: BACK PAIN
     Dosage: DAILY DOSE:  UNKNOWN, FREQUENCY: AS NEEDED.
     Route: 048
  8. CYCLOBENZAPRINE [Concomitant]
     Indication: BACK PAIN
     Dosage: DAILY DOSE:  UNKNOWN, FREQUENCY: AS NEEDED.
     Route: 048
  9. ALLOPURINOL [Concomitant]
     Indication: GOUT
     Dosage: DAILY DOSE:  UNKNOWN
     Route: 048
  10. DIOVAN [Concomitant]
     Indication: HYPERTENSION
     Dosage: DAILY DOSE:  UNKNOWN
     Route: 048
  11. LOPRESSOR [Concomitant]
     Indication: HEART RATE INCREASED
     Dosage: DAILY DOSE:  UNKNOWN
     Route: 048

REACTIONS (2)
  - BLOOD TESTOSTERONE ABNORMAL [None]
  - PANCREATITIS ACUTE [None]
